FAERS Safety Report 11707013 (Version 3)
Quarter: 2016Q1

REPORT INFORMATION
  Report Type: Spontaneous
  Country: US (occurrence: US)
  Receive Date: 20151106
  Receipt Date: 20160106
  Transmission Date: 20160525
  Serious: No
  Sender: FDA-Public Use
  Company Number: US-ACTELION PHARMACEUTICALS US, INC.-A-US2015-126831

PATIENT
  Age: 75 Year
  Sex: Female

DRUGS (19)
  1. JANUVIA [Concomitant]
     Active Substance: SITAGLIPTIN PHOSPHATE
  2. RIOCIGUAT [Concomitant]
     Active Substance: RIOCIGUAT
  3. VOLTAREN [Concomitant]
     Active Substance: DICLOFENAC SODIUM
  4. NASONEX [Concomitant]
     Active Substance: MOMETASONE FUROATE
  5. FLUOXETINE [Concomitant]
     Active Substance: FLUOXETINE HYDROCHLORIDE
  6. OPSUMIT [Suspect]
     Active Substance: MACITENTAN
     Indication: PULMONARY ARTERIAL HYPERTENSION
     Dosage: 10 MG, QD
     Route: 048
     Dates: start: 20141003
  7. COUMADIN [Concomitant]
     Active Substance: WARFARIN SODIUM
  8. SYNTHROID [Concomitant]
     Active Substance: LEVOTHYROXINE SODIUM
  9. BELVIQ [Concomitant]
     Active Substance: LORCASERIN HYDROCHLORIDE
  10. FUROSEMIDE. [Concomitant]
     Active Substance: FUROSEMIDE
  11. RECLAST [Concomitant]
     Active Substance: ZOLEDRONIC ACID
  12. OXYCONTIN [Concomitant]
     Active Substance: OXYCODONE HYDROCHLORIDE
  13. CRESTOR [Concomitant]
     Active Substance: ROSUVASTATIN CALCIUM
  14. ACETAZOLAMIDE. [Concomitant]
     Active Substance: ACETAZOLAMIDE
  15. LANTUS [Concomitant]
     Active Substance: INSULIN GLARGINE
  16. DOXEPIN [Concomitant]
     Active Substance: DOXEPIN
  17. ALPRAZOLAM. [Concomitant]
     Active Substance: ALPRAZOLAM
  18. ATENOLOL. [Concomitant]
     Active Substance: ATENOLOL
  19. VENTOLIN [Concomitant]
     Active Substance: ALBUTEROL SULFATE

REACTIONS (4)
  - Dysuria [Not Recovered/Not Resolved]
  - Dyspnoea [Unknown]
  - Swelling [Unknown]
  - Epistaxis [Recovered/Resolved]

NARRATIVE: CASE EVENT DATE: 201510
